FAERS Safety Report 25901049 (Version 1)
Quarter: 2025Q4

REPORT INFORMATION
  Report Type: Spontaneous
  Country: EU (occurrence: EU)
  Receive Date: 20251009
  Receipt Date: 20251009
  Transmission Date: 20260118
  Serious: Yes (Other)
  Sender: RANBAXY
  Company Number: EU-SUN PHARMACEUTICAL INDUSTRIES LTD-2025RR-530727

PATIENT
  Age: 86 Year
  Sex: Male

DRUGS (1)
  1. GEMCITABINE [Suspect]
     Active Substance: GEMCITABINE
     Indication: Pancreatic carcinoma metastatic
     Dosage: 1480 MILLIGRAM, DAILY
     Route: 040
     Dates: start: 20250505

REACTIONS (2)
  - Rash maculo-papular [Unknown]
  - Purpura [Unknown]

NARRATIVE: CASE EVENT DATE: 20250507
